FAERS Safety Report 7387706-X (Version None)
Quarter: 2011Q1

REPORT INFORMATION
  Report Type: 
  Country: None (occurrence: None)
  Receive Date: 20110331
  Receipt Date: 20081001
  Transmission Date: 20110831
  Serious: Yes (Death, Other)
  Sender: FDA-Public Use
  Company Number: US-BAYER-2011-006364

PATIENT
  Sex: Male
  Weight: 6.349 kg

DRUGS (3)
  1. TRASYLOL [Suspect]
     Indication: SURGERY
     Dosage: UNK
     Route: 042
     Dates: start: 19950705
  2. LASIX [Concomitant]
     Dosage: UNK
     Route: 048
     Dates: start: 19941001, end: 19950713
  3. CAPOTEN [Concomitant]
     Dosage: UNK
     Route: 048
     Dates: start: 19940922, end: 19950713

REACTIONS (8)
  - MULTI-ORGAN FAILURE [None]
  - INJURY [None]
  - BRAIN DEATH [None]
  - EMOTIONAL DISTRESS [None]
  - ANXIETY [None]
  - PAIN [None]
  - RENAL FAILURE [None]
  - STRESS [None]
